FAERS Safety Report 8259957-3 (Version None)
Quarter: 2012Q2

REPORT INFORMATION
  Report Type: 
  Country: None (occurrence: None)
  Receive Date: 20120404
  Receipt Date: 20120326
  Transmission Date: 20120825
  Serious: Yes (Hospitalization)
  Sender: FDA-Public Use
  Company Number: US-JNJFOC-20100807750

PATIENT
  Sex: Female
  Weight: 36 kg

DRUGS (9)
  1. MESALAMINE [Concomitant]
     Route: 054
  2. ACETAMINOPHEN [Concomitant]
  3. CALCIUM CARBONATE [Concomitant]
  4. LANSOPRAZOLE [Concomitant]
  5. LACTAID [Concomitant]
  6. MULTI-VITAMINS [Concomitant]
  7. REMICADE [Suspect]
     Indication: INFLAMMATORY BOWEL DISEASE
     Route: 042
     Dates: start: 20100829
  8. MESALAMINE [Concomitant]
     Route: 048
  9. REMICADE [Suspect]
     Route: 042
     Dates: start: 20100722

REACTIONS (2)
  - NUTRITIONAL CONDITION ABNORMAL [None]
  - INFLAMMATORY BOWEL DISEASE [None]
